FAERS Safety Report 4706745-8 (Version None)
Quarter: 2005Q2

REPORT INFORMATION
  Report Type: 
  Country: None (occurrence: None)
  Receive Date: 20050629
  Receipt Date: 20050422
  Transmission Date: 20051028
  Serious: No
  Sender: FDA-Public Use
  Company Number: 05P-163-0298293-00

PATIENT
  Age: 76 Year
  Sex: Female
  Weight: 58.514 kg

DRUGS (11)
  1. HUMIRA [Suspect]
     Indication: RHEUMATOID ARTHRITIS
     Dosage: 40 MG, 1 IN 2 WK, SUBCUTANEOUS
     Route: 058
     Dates: start: 20050118, end: 20050301
  2. ATENOLOL [Concomitant]
  3. DILTIAZEM HYDROCLORIDE [Concomitant]
  4. HYDROCHLOROTHIAZIDE [Concomitant]
  5. DIOVAN [Concomitant]
  6. GABAPENTIN [Concomitant]
  7. DARVOCET [Concomitant]
  8. TIZANIDINE HCL [Concomitant]
  9. ATORVASTATIN CALCIUM [Concomitant]
  10. ALPRAZOLAM [Concomitant]
  11. CALCIUM GLUCONATE [Concomitant]

REACTIONS (1)
  - SINUSITIS [None]
